FAERS Safety Report 24831398 (Version 1)
Quarter: 2025Q1

REPORT INFORMATION
  Report Type: Spontaneous
  Country: US (occurrence: US)
  Receive Date: 20250110
  Receipt Date: 20250110
  Transmission Date: 20250409
  Serious: No
  Sender: SANOFI AVENTIS
  Company Number: US-SA-2025SA009157

PATIENT
  Age: 73 Year
  Sex: Female

DRUGS (15)
  1. DUPIXENT [Suspect]
     Active Substance: DUPILUMAB
     Indication: Chronic respiratory failure
     Dosage: UNK UNK, QOW
     Route: 058
     Dates: start: 20241231
  2. DUPIXENT [Suspect]
     Active Substance: DUPILUMAB
     Indication: Hypoxia
  3. ALENDRONATE [Concomitant]
     Active Substance: ALENDRONATE SODIUM
  4. ASPIRIN [Concomitant]
     Active Substance: ASPIRIN
  5. EZETIMIBE [Concomitant]
     Active Substance: EZETIMIBE
  6. FERROUS SULFATE [Concomitant]
     Active Substance: FERROUS SULFATE
  7. IPRATROPIUM [Concomitant]
     Active Substance: IPRATROPIUM
  8. LISINOPRIL [Concomitant]
     Active Substance: LISINOPRIL
  9. VITAMINS [Concomitant]
     Active Substance: VITAMINS
  10. MINERALS\VITAMINS [Concomitant]
     Active Substance: MINERALS\VITAMINS
  11. TORSEMIDE [Concomitant]
     Active Substance: TORSEMIDE
  12. VITAMIN B12 [Concomitant]
     Active Substance: CYANOCOBALAMIN
  13. VITAMIN C [Concomitant]
     Active Substance: ASCORBIC ACID
  14. VITAMIN D3 [Concomitant]
     Active Substance: CHOLECALCIFEROL
  15. ZITHROMAX [Concomitant]
     Active Substance: AZITHROMYCIN DIHYDRATE

REACTIONS (2)
  - Dyspnoea exertional [Not Recovered/Not Resolved]
  - Product use in unapproved indication [Unknown]

NARRATIVE: CASE EVENT DATE: 20241231
